FAERS Safety Report 4494945-4 (Version None)
Quarter: 2004Q4

REPORT INFORMATION
  Report Type: 
  Country: None (occurrence: None)
  Receive Date: 20041105
  Receipt Date: 20041105
  Transmission Date: 20050328
  Serious: Yes (Life-Threatening, Hospitalization)
  Sender: FDA-Public Use
  Company Number: None

PATIENT
  Age: 43 Year
  Sex: Female
  Weight: 70.3075 kg

DRUGS (1)
  1. VIOXX [Suspect]
     Indication: OSTEOARTHRITIS
     Dosage: HALF OF 25MG  DAILY ORAL
     Route: 048
     Dates: start: 20000106, end: 20000326

REACTIONS (8)
  - CHEST DISCOMFORT [None]
  - CORONARY ARTERY OCCLUSION [None]
  - DYSPNOEA [None]
  - DYSPNOEA EXERTIONAL [None]
  - HEADACHE [None]
  - HYPERTENSION [None]
  - SWELLING [None]
  - URINARY TRACT DISORDER [None]
